FAERS Safety Report 13337175 (Version 1)
Quarter: 2017Q1

REPORT INFORMATION
  Report Type: Spontaneous
  Country: US (occurrence: US)
  Receive Date: 20170315
  Receipt Date: 20170315
  Transmission Date: 20170428
  Serious: Yes (Death, Life-Threatening, Hospitalization)
  Sender: FDA-Public Use
  Company Number: US-SCIEGEN PHARMACEUTICALS INC-2017SCILIT00193

PATIENT
  Age: 13 Year
  Sex: Female

DRUGS (1)
  1. BUPROPION HYDROCHLORIDE. [Suspect]
     Active Substance: BUPROPION HYDROCHLORIDE
     Indication: DEPRESSION
     Dosage: 21000 MG, UNK
     Route: 065

REACTIONS (8)
  - Cardiac arrest [Unknown]
  - Seizure [Unknown]
  - Intentional overdose [Fatal]
  - Brain death [Fatal]
  - Suicide attempt [Fatal]
  - Brain oedema [Fatal]
  - Apnoea [Unknown]
  - Coma [Fatal]
